FAERS Safety Report 25328977 (Version 1)
Quarter: 2025Q2

REPORT INFORMATION
  Report Type: Report from Study
  Country: US (occurrence: US)
  Receive Date: 20250519
  Receipt Date: 20250519
  Transmission Date: 20250717
  Serious: Yes (Other)
  Sender: ROCHE
  Company Number: US-ROCHE-10000284223

PATIENT

DRUGS (5)
  1. ATEZOLIZUMAB [Suspect]
     Active Substance: ATEZOLIZUMAB
     Indication: Lung neoplasm malignant
     Route: 065
  2. PEMBROLIZUMAB [Suspect]
     Active Substance: PEMBROLIZUMAB
     Indication: Lung neoplasm malignant
     Route: 065
  3. NIVOLUMAB [Suspect]
     Active Substance: NIVOLUMAB
     Indication: Lung neoplasm malignant
     Route: 065
  4. IPILIMUMAB [Suspect]
     Active Substance: IPILIMUMAB
     Indication: Lung neoplasm malignant
     Route: 065
  5. DURVALUMAB [Suspect]
     Active Substance: DURVALUMAB
     Indication: Lung neoplasm malignant
     Route: 065

REACTIONS (12)
  - Thyroid disorder [Unknown]
  - Pneumonitis [Unknown]
  - Dermatitis [Unknown]
  - Gastrointestinal toxicity [Unknown]
  - Cardiotoxicity [Unknown]
  - Hepatotoxicity [Unknown]
  - Toxicity to various agents [Unknown]
  - Skin toxicity [Unknown]
  - Endocrine disorder [Unknown]
  - Mucosal toxicity [Unknown]
  - Nephritis [Unknown]
  - Musculoskeletal toxicity [Unknown]
